FAERS Safety Report 20626795 (Version 1)
Quarter: 2022Q1

REPORT INFORMATION
  Report Type: Spontaneous
  Country: US (occurrence: US)
  Receive Date: 20220323
  Receipt Date: 20220323
  Transmission Date: 20220423
  Serious: Yes (Other)
  Sender: FDA-Public Use
  Company Number: US-APOTEX-2022AP005031

PATIENT
  Age: 61 Year
  Sex: Male

DRUGS (2)
  1. CYCLOSPORINE [Suspect]
     Active Substance: CYCLOSPORINE
     Indication: Neuropathy peripheral
     Dosage: UNK
     Route: 048
  2. METHYLPREDNISOLONE [Suspect]
     Active Substance: METHYLPREDNISOLONE
     Indication: Neuropathy peripheral
     Dosage: 500 MILLIGRAM, Q.WK.
     Route: 042

REACTIONS (2)
  - Osteonecrosis [Unknown]
  - Anaemia [Unknown]
